FAERS Safety Report 9068506 (Version 1)
Quarter: 2013Q1

REPORT INFORMATION
  Report Type: Spontaneous
  Country: US (occurrence: None)
  Receive Date: 20130212
  Receipt Date: 20130212
  Transmission Date: 20140127
  Serious: Yes (Other)
  Sender: FDA-Public Use
  Company Number: None

PATIENT
  Age: 49 Year
  Sex: Male
  Weight: 70.76 kg

DRUGS (1)
  1. SEROQUIL 200MLG [Suspect]
     Indication: BACK PAIN
     Dosage: 200 MLG ONCE IV
     Route: 042
     Dates: start: 20121110, end: 20121110

REACTIONS (10)
  - Abasia [None]
  - Swelling face [None]
  - Swollen tongue [None]
  - Fall [None]
  - Head injury [None]
  - Anger [None]
  - Agitation [None]
  - Emotional disorder [None]
  - Panic disorder [None]
  - Physical assault [None]
